FAERS Safety Report 7588729-8 (Version None)
Quarter: 2011Q3

REPORT INFORMATION
  Report Type: 
  Country: None (occurrence: None)
  Receive Date: 20110705
  Receipt Date: 20110624
  Transmission Date: 20111222
  Serious: Yes (Hospitalization)
  Sender: FDA-Public Use
  Company Number: CA-ASTELLAS-2011US002467

PATIENT
  Sex: Male
  Weight: 91 kg

DRUGS (1)
  1. AMEVIVE [Suspect]
     Indication: PSORIASIS
     Dosage: 15 MG, WEEKLY
     Route: 030
     Dates: start: 20050610

REACTIONS (9)
  - POST PROCEDURAL INFECTION [None]
  - FALL [None]
  - ATRIOVENTRICULAR BLOCK SECOND DEGREE [None]
  - DEVICE MALFUNCTION [None]
  - LETHARGY [None]
  - HEART RATE DECREASED [None]
  - ATRIOVENTRICULAR BLOCK COMPLETE [None]
  - EMOTIONAL DISTRESS [None]
  - IMPLANT SITE INFECTION [None]
